FAERS Safety Report 5473415-0 (Version None)
Quarter: 2007Q4

REPORT INFORMATION
  Report Type: 
  Country: None (occurrence: None)
  Receive Date: 20071001
  Receipt Date: 20070921
  Transmission Date: 20080405
  Serious: Yes (Other)
  Sender: FDA-Public Use
  Company Number: GB-BAUSCH-2007BL003454

PATIENT
  Age: 21 Year
  Sex: Female

DRUGS (5)
  1. TOBRAMYCIN [Suspect]
     Indication: ANTI-INFECTIVE THERAPY
     Route: 042
     Dates: start: 20031101, end: 20031101
  2. COLOMYCIN [Concomitant]
     Indication: ANTI-INFECTIVE THERAPY
     Route: 042
     Dates: start: 20031101
  3. AZITHROMYCIN [Concomitant]
     Indication: ANTIINFLAMMATORY THERAPY
     Route: 065
     Dates: end: 20031101
  4. ANALGESICS [Concomitant]
     Indication: ARTHROPATHY
     Dates: start: 20031101, end: 20031101
  5. IBUPROFEN [Concomitant]
     Indication: ARTHROPATHY
     Route: 065
     Dates: start: 20031101, end: 20031101

REACTIONS (1)
  - RENAL FAILURE ACUTE [None]
